FAERS Safety Report 9276430 (Version 1)
Quarter: 2013Q2

REPORT INFORMATION
  Report Type: Spontaneous
  Country: IE (occurrence: IE)
  Receive Date: 20130507
  Receipt Date: 20130507
  Transmission Date: 20140414
  Serious: Yes (Hospitalization)
  Sender: FDA-Public Use
  Company Number: IE-AMGEN-IRLSP2013031292

PATIENT
  Age: 60 Year
  Sex: Male

DRUGS (2)
  1. NEULASTA [Suspect]
     Indication: SMALL CELL LUNG CANCER
     Dosage: 6MG/0.6ML, POST CHEMO EVERY 3 WEEKS
     Route: 058
     Dates: start: 20130409
  2. CHEMOTHERAPEUTICS [Concomitant]
     Indication: SMALL CELL LUNG CANCER
     Dosage: UNK

REACTIONS (1)
  - Pain in extremity [Unknown]
